FAERS Safety Report 8293235-1 (Version None)
Quarter: 2012Q2

REPORT INFORMATION
  Report Type: 
  Country: None (occurrence: None)
  Receive Date: 20120417
  Receipt Date: 20120405
  Transmission Date: 20120825
  Serious: Yes (Hospitalization)
  Sender: FDA-Public Use
  Company Number: FR-GILEAD-2012-0053390

PATIENT
  Sex: Female

DRUGS (4)
  1. CYTARABINE [Concomitant]
     Indication: LEUKAEMIA
     Dosage: 2000 MG/M2, CYCLICAL
     Dates: start: 20110930
  2. MYLOTARG [Concomitant]
     Dosage: 4.5 MG/M2, CYCLICAL
  3. DAUNOXOME [Suspect]
     Indication: LEUKAEMIA
     Dosage: 60 MG/M2, CYCLICAL
     Route: 042
     Dates: start: 20110930, end: 20111004
  4. FLUDARABINE PHOSPHATE [Concomitant]
     Dosage: 30 MG/M2, CYCLICAL
     Dates: start: 20110930

REACTIONS (1)
  - LUNG DISORDER [None]
